FAERS Safety Report 8474404-4 (Version None)
Quarter: 2012Q2

REPORT INFORMATION
  Report Type: 
  Country: None (occurrence: None)
  Receive Date: 20120621
  Receipt Date: 20120606
  Transmission Date: 20120825
  Serious: Yes (Other)
  Sender: FDA-Public Use
  Company Number: TPA2012A03360

PATIENT
  Sex: Male

DRUGS (1)
  1. PREVACID [Suspect]

REACTIONS (1)
  - SMALL INTESTINAL RESECTION [None]
